FAERS Safety Report 6108895-0 (Version None)
Quarter: 2009Q1

REPORT INFORMATION
  Report Type: 
  Country: None (occurrence: None)
  Receive Date: 20090310
  Receipt Date: 20090305
  Transmission Date: 20090719
  Serious: Yes (Death)
  Sender: FDA-Public Use
  Company Number: AU-CELGENEUS-008-20785-09021665

PATIENT
  Sex: Female
  Weight: 44 kg

DRUGS (8)
  1. THALIDOMIDE [Suspect]
     Indication: MULTIPLE MYELOMA
     Route: 048
     Dates: start: 20071201, end: 20081201
  2. MIRTAZAPINE [Concomitant]
     Indication: DEPRESSION
     Route: 065
  3. FUROSEMIDE [Concomitant]
     Indication: FLUID RETENTION
     Route: 065
  4. PANTOPRAZOLE [Concomitant]
     Indication: DRUG USE FOR UNKNOWN INDICATION
     Route: 065
  5. OLANZAPINE [Concomitant]
     Indication: DEPRESSION
     Route: 065
  6. DEXAMETHASONE [Concomitant]
     Route: 065
  7. BUPENEPHRINE [Concomitant]
     Route: 065
  8. MOVICAL [Concomitant]
     Indication: CONSTIPATION
     Route: 065

REACTIONS (5)
  - BONE MARROW FAILURE [None]
  - CONSTIPATION [None]
  - FATIGUE [None]
  - MULTIPLE MYELOMA [None]
  - SEDATION [None]
